FAERS Safety Report 6551120-7 (Version None)
Quarter: 2010Q1

REPORT INFORMATION
  Report Type: 
  Country: None (occurrence: None)
  Receive Date: 20100125
  Receipt Date: 20100114
  Transmission Date: 20100710
  Serious: Yes (Other)
  Sender: FDA-Public Use
  Company Number: US-BAXTER-2009BH017000

PATIENT
  Age: 59 Year
  Sex: Male
  Weight: 124 kg

DRUGS (38)
  1. HEPARIN SODIUM INJECTION [Suspect]
     Indication: THROMBOSIS PROPHYLAXIS
     Route: 042
     Dates: start: 20071203
  2. HEPARIN SODIUM INJECTION [Suspect]
     Route: 042
     Dates: start: 20071205
  3. HEPARIN SODIUM INJECTION [Suspect]
     Route: 042
     Dates: start: 20071207
  4. HEPARIN SODIUM INJECTION [Suspect]
     Route: 042
     Dates: start: 20071210
  5. HEPARIN SODIUM INJECTION [Suspect]
     Route: 042
     Dates: start: 20071212
  6. HEPARIN SODIUM INJECTION [Suspect]
     Route: 042
     Dates: start: 20071214
  7. HEPARIN SODIUM INJECTION [Suspect]
     Route: 042
     Dates: start: 20071217
  8. HEPARIN SODIUM INJECTION [Suspect]
     Route: 042
     Dates: start: 20071219
  9. HEPARIN SODIUM INJECTION [Suspect]
     Route: 042
     Dates: start: 20071221
  10. HEPARIN SODIUM INJECTION [Suspect]
     Route: 042
     Dates: start: 20071223
  11. HEPARIN SODIUM INJECTION [Suspect]
     Route: 042
     Dates: start: 20071226
  12. HEPARIN SODIUM INJECTION [Suspect]
     Route: 042
     Dates: start: 20071228
  13. HEPARIN SODIUM INJECTION [Suspect]
     Route: 042
     Dates: start: 20071230
  14. HEPARIN SODIUM INJECTION [Suspect]
     Route: 042
     Dates: start: 20080102
  15. HEPARIN SODIUM INJECTION [Suspect]
     Route: 042
     Dates: start: 20080104
  16. HEPARIN SODIUM INJECTION [Suspect]
     Route: 042
     Dates: start: 20080107
  17. HEPARIN SODIUM INJECTION [Suspect]
     Route: 042
     Dates: start: 20080109
  18. HEPARIN SODIUM INJECTION [Suspect]
     Route: 042
     Dates: start: 20080111
  19. HEPARIN SODIUM INJECTION [Suspect]
     Route: 042
     Dates: start: 20080114
  20. HEPARIN SODIUM INJECTION [Suspect]
     Route: 042
     Dates: start: 20080116
  21. HEPARIN SODIUM INJECTION [Suspect]
     Route: 042
     Dates: start: 20080118
  22. HEPARIN SODIUM INJECTION [Suspect]
     Route: 042
     Dates: start: 20080121
  23. HEPARIN SODIUM INJECTION [Suspect]
     Route: 042
     Dates: start: 20080123
  24. HEPARIN SODIUM INJECTION [Suspect]
     Route: 042
     Dates: start: 20080125
  25. HEPARIN SODIUM INJECTION [Suspect]
     Route: 042
     Dates: start: 20080128
  26. HEPARIN SODIUM INJECTION [Suspect]
     Route: 042
     Dates: start: 20080130
  27. ANTIBIOTICS [Concomitant]
     Indication: DRUG USE FOR UNKNOWN INDICATION
     Route: 065
  28. IRON [Concomitant]
     Indication: DRUG USE FOR UNKNOWN INDICATION
     Route: 065
  29. EPOGEN [Concomitant]
     Indication: DRUG USE FOR UNKNOWN INDICATION
     Route: 065
  30. ALLOPURINOL [Concomitant]
     Indication: DRUG USE FOR UNKNOWN INDICATION
     Route: 065
  31. CADUET [Concomitant]
     Indication: DRUG USE FOR UNKNOWN INDICATION
     Route: 065
  32. HYDRALAZINE [Concomitant]
     Indication: DRUG USE FOR UNKNOWN INDICATION
     Route: 065
  33. LANTUS [Concomitant]
     Indication: DRUG USE FOR UNKNOWN INDICATION
     Route: 065
  34. LISINOPRIL [Concomitant]
     Indication: DRUG USE FOR UNKNOWN INDICATION
     Route: 065
  35. METOPROLOL [Concomitant]
     Indication: DRUG USE FOR UNKNOWN INDICATION
     Route: 065
  36. NEXIUM [Concomitant]
     Indication: DRUG USE FOR UNKNOWN INDICATION
     Route: 065
  37. NOVOLOG [Concomitant]
     Indication: DRUG USE FOR UNKNOWN INDICATION
     Route: 065
  38. LANTUS [Concomitant]
     Route: 065

REACTIONS (9)
  - ABDOMINAL PAIN [None]
  - ANXIETY [None]
  - BLOOD PRESSURE DECREASED [None]
  - CHEST PAIN [None]
  - DIARRHOEA [None]
  - DIZZINESS [None]
  - NAUSEA [None]
  - PRURITUS [None]
  - VOMITING [None]
